FAERS Safety Report 6236407-X (Version None)
Quarter: 2009Q2

REPORT INFORMATION
  Report Type: 
  Country: None (occurrence: None)
  Receive Date: 20090619
  Receipt Date: 20090610
  Transmission Date: 20091009
  Serious: Yes (Hospitalization)
  Sender: FDA-Public Use
  Company Number: JP-ASTRAZENECA-2009SE02919

PATIENT
  Age: 65 Year
  Sex: Male

DRUGS (1)
  1. MEROPEN [Suspect]
     Indication: PSEUDOMONAS INFECTION
     Route: 042

REACTIONS (1)
  - SEPTIC SHOCK [None]
